FAERS Safety Report 6840968-7 (Version None)
Quarter: 2010Q3

REPORT INFORMATION
  Report Type: 
  Country: None (occurrence: None)
  Receive Date: 20100714
  Receipt Date: 20070619
  Transmission Date: 20110219
  Serious: No
  Sender: FDA-Public Use
  Company Number: US-PFIZER INC-2007052041

PATIENT
  Sex: Female
  Weight: 52.7 kg

DRUGS (8)
  1. CHANTIX [Suspect]
     Indication: SMOKING CESSATION THERAPY
     Dates: start: 20070610
  2. CHEMOTHERAPY NOS [Concomitant]
     Indication: BREAST CANCER
  3. ACTONEL [Concomitant]
  4. WELLBUTRIN [Concomitant]
  5. REMERON [Concomitant]
  6. XANAX [Concomitant]
     Indication: ANXIETY
  7. XANAX [Concomitant]
     Indication: PANIC DISORDER
  8. ADVAIR DISKUS 100/50 [Concomitant]

REACTIONS (1)
  - ABNORMAL DREAMS [None]
